FAERS Safety Report 6487539-2 (Version None)
Quarter: 2009Q4

REPORT INFORMATION
  Report Type: 
  Country: None (occurrence: None)
  Receive Date: 20091210
  Receipt Date: 20090817
  Transmission Date: 20100525
  Serious: No
  Sender: FDA-Public Use
  Company Number: US-AMGEN-KDL360509

PATIENT
  Sex: Female

DRUGS (4)
  1. ENBREL [Suspect]
     Indication: PSORIASIS
     Dates: start: 20090609
  2. METOPROLOL [Concomitant]
  3. SIMVASTATIN [Concomitant]
  4. DIOVAN [Concomitant]

REACTIONS (1)
  - EPISTAXIS [None]
